FAERS Safety Report 5958607-6 (Version None)
Quarter: 2008Q4

REPORT INFORMATION
  Report Type: 
  Country: None (occurrence: None)
  Receive Date: 20081110
  Receipt Date: 20081012
  Transmission Date: 20090506
  Serious: Yes (Death, Other)
  Sender: FDA-Public Use
  Company Number: CHPA2008US17993

PATIENT
  Age: 50 Year
  Sex: Male

DRUGS (2)
  1. ACETAMINOPHEN (PARACETAMOL),DIPHENHYDRAMINE HYDROCHLORIDE (NCH)(ACETAM [Suspect]
     Dosage: ORAL
     Route: 048
  2. ETHANOL (ETHANOL) [Suspect]
     Dosage: ORAL
     Route: 048

REACTIONS (20)
  - ACIDOSIS [None]
  - ALANINE AMINOTRANSFERASE INCREASED [None]
  - ASPARTATE AMINOTRANSFERASE INCREASED [None]
  - BILIRUBIN CONJUGATED INCREASED [None]
  - BLOOD BILIRUBIN INCREASED [None]
  - BLOOD POTASSIUM DECREASED [None]
  - BLOOD PRESSURE INCREASED [None]
  - COMPLETED SUICIDE [None]
  - DRUG TOXICITY [None]
  - ELECTROCARDIOGRAM QT PROLONGED [None]
  - ELECTROCARDIOGRAM ST SEGMENT DEPRESSION [None]
  - FAECES DISCOLOURED [None]
  - HAEMODIALYSIS [None]
  - HEART RATE INCREASED [None]
  - INTERNATIONAL NORMALISED RATIO INCREASED [None]
  - OXYGEN SATURATION DECREASED [None]
  - PROTHROMBIN TIME PROLONGED [None]
  - RESPIRATORY RATE INCREASED [None]
  - UNRESPONSIVE TO STIMULI [None]
  - URINE OUTPUT DECREASED [None]
